FAERS Safety Report 7289871-1 (Version None)
Quarter: 2011Q1

REPORT INFORMATION
  Report Type: 
  Country: None (occurrence: None)
  Receive Date: 20110214
  Receipt Date: 20110201
  Transmission Date: 20110831
  Serious: Yes (Other)
  Sender: FDA-Public Use
  Company Number: AU-JNJFOC-20101209154

PATIENT
  Sex: Female

DRUGS (13)
  1. CLOPIDOGREL [Concomitant]
  2. INDAPAMIDE [Concomitant]
  3. ETANERCEPT [Concomitant]
  4. ACETYLSALICYLIC ACID [Concomitant]
  5. ESOMEPRAZOLE [Concomitant]
  6. ESTROGENIC SUBSTANCE [Concomitant]
  7. GLYCERYL TRINITRATE [Concomitant]
  8. RAMIPRIL [Concomitant]
  9. ROSUVASTATIN [Concomitant]
  10. STELARA [Suspect]
     Indication: PRODUCT USED FOR UNKNOWN INDICATION
     Route: 058
  11. ATENOLOL [Concomitant]
  12. CANDESARTAN [Concomitant]
  13. MEDROXYPROGESTERONE [Concomitant]

REACTIONS (2)
  - PERIPHERAL VASCULAR DISORDER [None]
  - CELLULITIS [None]
